FAERS Safety Report 24242653 (Version 4)
Quarter: 2024Q4

REPORT INFORMATION
  Report Type: Spontaneous
  Country: CO (occurrence: CO)
  Receive Date: 20240823
  Receipt Date: 20241011
  Transmission Date: 20250114
  Serious: No
  Sender: PFIZER
  Company Number: CO-PFIZER INC-202400235741

PATIENT
  Age: 11 Year
  Sex: Female
  Weight: 32 kg

DRUGS (2)
  1. GENOTROPIN [Suspect]
     Active Substance: SOMATROPIN
     Indication: Short stature
     Dosage: 1.2 MG, DAILY
     Route: 058
     Dates: start: 202405
  2. TRIPTORELIN [Concomitant]
     Active Substance: TRIPTORELIN
     Indication: Precocious puberty
     Dosage: EVERY 84 DAYS

REACTIONS (7)
  - Device mechanical issue [Unknown]
  - Device physical property issue [Unknown]
  - Poor quality device used [Unknown]
  - Nausea [Not Recovered/Not Resolved]
  - Abdominal pain upper [Unknown]
  - Headache [Not Recovered/Not Resolved]
  - Off label use [Unknown]

NARRATIVE: CASE EVENT DATE: 20240501
